FAERS Safety Report 5320191-8 (Version None)
Quarter: 2007Q2

REPORT INFORMATION
  Report Type: 
  Country: None (occurrence: None)
  Receive Date: 20070503
  Receipt Date: 20070503
  Transmission Date: 20071010
  Serious: Yes (Disabling, Other)
  Sender: FDA-Public Use
  Company Number: None

PATIENT
  Sex: Female
  Weight: 108.8633 kg

DRUGS (1)
  1. LIPITOR [Suspect]
     Indication: BLOOD CHOLESTEROL INCREASED
     Dosage: 10 MG QD PO
     Route: 048
     Dates: start: 20060623, end: 20070502

REACTIONS (4)
  - MOVEMENT DISORDER [None]
  - MUSCULAR WEAKNESS [None]
  - PARAESTHESIA [None]
  - PARKINSON'S DISEASE [None]
